FAERS Safety Report 17661075 (Version 1)
Quarter: 2020Q2

REPORT INFORMATION
  Report Type: Spontaneous
  Country: DE (occurrence: DE)
  Receive Date: 20200413
  Receipt Date: 20200413
  Transmission Date: 20200713
  Serious: Yes (Death, Hospitalization)
  Sender: FDA-Public Use
  Company Number: DE-TEVA-2020-DE-1222802

PATIENT
  Age: 78 Year
  Sex: Female

DRUGS (7)
  1. PERAZIN [Concomitant]
     Active Substance: PERAZINE
     Dosage: 50 MILLIGRAM DAILY;
  2. AZATHIOPRIN [Suspect]
     Active Substance: AZATHIOPRINE
     Dosage: 75 MILLIGRAM DAILY;
  3. CALCIUM [Concomitant]
     Active Substance: CALCIUM
     Dosage: NK MG
     Route: 048
  4. TORASEMID [Concomitant]
     Active Substance: TORSEMIDE
     Dosage: NK MG, PAUSE
  5. MIRTAZAPIN [Concomitant]
     Active Substance: MIRTAZAPINE
     Dosage: 15 MILLIGRAM DAILY;
  6. RISPERIDON [Suspect]
     Active Substance: RISPERIDONE
     Dosage: 1 MILLIGRAM DAILY;
  7. VIGANTOLETTEN 1000I.E. [Concomitant]
     Active Substance: CHOLECALCIFEROL
     Dosage: 1000 IE,

REACTIONS (8)
  - Pyrexia [Unknown]
  - Tachycardia [Unknown]
  - General physical health deterioration [Unknown]
  - Rhonchi [Unknown]
  - Disorientation [Unknown]
  - Depressed level of consciousness [Unknown]
  - Fatigue [Unknown]
  - Confusional state [Unknown]
